FAERS Safety Report 8907790 (Version 1)
Quarter: 2012Q4

REPORT INFORMATION
  Report Type: 
  Country: US (occurrence: US)
  Receive Date: 20121113
  Receipt Date: 20121113
  Transmission Date: 20130627
  Serious: No
  Sender: FDA-Public Use
  Company Number: US-AMGEN-USASP2012010377

PATIENT
  Sex: Male

DRUGS (5)
  1. ENBREL [Suspect]
     Indication: PRODUCT USED FOR UNKNOWN INDICATION
     Dosage: 50 mg, 2 times/wk
     Route: 058
  2. HUMULIN                            /00646003/ [Concomitant]
  3. LISINOPRIL [Concomitant]
     Dosage: 5 mg, UNK
  4. METOPROLOL [Concomitant]
     Dosage: 25 mg, UNK
  5. MORPHINE SULFATE [Concomitant]
     Dosage: 60 mg, UNK

REACTIONS (1)
  - Injection site bruising [Unknown]
